FAERS Safety Report 15190729 (Version 1)
Quarter: 2018Q3

REPORT INFORMATION
  Report Type: Spontaneous
  Country: US (occurrence: US)
  Receive Date: 20180625
  Receipt Date: 20180625
  Transmission Date: 20181010
  Serious: Yes (Death)
  Sender: FDA-Public Use
  Company Number: None

PATIENT
  Age: 68 Year
  Sex: Female

DRUGS (1)
  1. NINLARO [Suspect]
     Active Substance: IXAZOMIB CITRATE
     Dosage: ?          OTHER FREQUENCY:DAY1,1,15Q 28 DAYS;?
     Route: 048
     Dates: start: 20170223, end: 201805

REACTIONS (1)
  - Death [None]

NARRATIVE: CASE EVENT DATE: 201805
